FAERS Safety Report 8427757-7 (Version None)
Quarter: 2012Q2

REPORT INFORMATION
  Report Type: 
  Country: None (occurrence: None)
  Receive Date: 20120611
  Receipt Date: 20120605
  Transmission Date: 20120825
  Serious: Yes (Hospitalization)
  Sender: FDA-Public Use
  Company Number: NL-B.I. PHARMACEUTICALS,INC./RIDGEFIELD-2012-NL-00238NL

PATIENT
  Age: 81 Year
  Sex: Female

DRUGS (1)
  1. PRADAXA [Suspect]
     Indication: ATRIAL FIBRILLATION
     Dosage: 220 MG

REACTIONS (3)
  - RENAL IMPAIRMENT [None]
  - HAEMOPTYSIS [None]
  - DEHYDRATION [None]
